FAERS Safety Report 19419263 (Version 7)
Quarter: 2021Q3

REPORT INFORMATION
  Report Type: Report from Study
  Country: CN (occurrence: CN)
  Receive Date: 20210615
  Receipt Date: 20210915
  Transmission Date: 20211014
  Serious: Yes (Hospitalization)
  Sender: FDA-Public Use
  Company Number: CN-PFIZER INC-2021666391

PATIENT
  Age: 74 Year
  Sex: Male
  Weight: 79 kg

DRUGS (6)
  1. TALAZOPARIB. [Suspect]
     Active Substance: TALAZOPARIB
     Dosage: UNK, 1X/DAY (QD)
     Route: 048
     Dates: start: 20201212
  2. ETORICOXIB. [Concomitant]
     Active Substance: ETORICOXIB
     Indication: ARTHRALGIA
     Dosage: 1 TABLET, AS NEEDED (PRN)
     Route: 048
     Dates: start: 20210330
  3. ENZALUTAMIDE [Suspect]
     Active Substance: ENZALUTAMIDE
     Indication: PROSTATE CANCER METASTATIC
     Dosage: 160 MG, 1X/DAY (QD)
     Route: 048
     Dates: start: 20200702
  4. TALAZOPARIB. [Suspect]
     Active Substance: TALAZOPARIB
     Indication: PROSTATE CANCER METASTATIC
     Dosage: UNK, 1X/DAY (QD)
     Route: 048
     Dates: start: 20200702, end: 20201119
  5. GOSERELIN ACETATE [Concomitant]
     Active Substance: GOSERELIN ACETATE
     Indication: PROSTATE CANCER
     Dosage: 10.8 MG, EVERY 3 MONTHS (Q3M) SUSTAINED RELEASE
     Route: 058
     Dates: start: 20200609
  6. ETORICOXIB. [Concomitant]
     Active Substance: ETORICOXIB
     Indication: PAIN IN EXTREMITY

REACTIONS (1)
  - Gastritis [Recovering/Resolving]

NARRATIVE: CASE EVENT DATE: 20210501
